FAERS Safety Report 11429607 (Version 1)
Quarter: 2015Q3

REPORT INFORMATION
  Report Type: Spontaneous
  Country: US (occurrence: US)
  Receive Date: 20150828
  Receipt Date: 20150828
  Transmission Date: 20151125
  Serious: No
  Sender: FDA-Public Use
  Company Number: US-ROCHE-1214194

PATIENT
  Sex: Male

DRUGS (4)
  1. PEGASYS [Suspect]
     Active Substance: PEGINTERFERON ALFA-2A
     Dosage: THERAPY WAS LASTED THREE MONTHS AS THE PATIENT WAS NONRESPONSIVE
     Route: 065
     Dates: start: 2008
  2. PEGASYS [Suspect]
     Active Substance: PEGINTERFERON ALFA-2A
     Indication: CHRONIC HEPATITIS C
     Route: 058
     Dates: start: 20130412
  3. RIBAVIRIN. [Suspect]
     Active Substance: RIBAVIRIN
     Indication: CHRONIC HEPATITIS C
     Dosage: IN DIVIDED DOSES
     Route: 048
     Dates: start: 20130412
  4. RIBAVIRIN. [Suspect]
     Active Substance: RIBAVIRIN
     Dosage: THERAPY WAS LASTED THREE MONTHS AS THE PATIENT WAS NONRESPONSIVE
     Route: 065
     Dates: start: 2008

REACTIONS (2)
  - Drug administration error [Unknown]
  - No therapeutic response [Unknown]

NARRATIVE: CASE EVENT DATE: 2008
